FAERS Safety Report 12834358 (Version 1)
Quarter: 2016Q4

REPORT INFORMATION
  Report Type: Spontaneous
  Country: US (occurrence: US)
  Receive Date: 20161010
  Receipt Date: 20161010
  Transmission Date: 20170207
  Serious: No
  Sender: FDA-Public Use
  Company Number: US-PERRIGO-16US001565

PATIENT
  Sex: Female

DRUGS (2)
  1. NICOTINE POLACRILEX [Suspect]
     Active Substance: NICOTINE
     Indication: NICOTINE DEPENDENCE
     Dosage: UNK, UNK
     Route: 002
  2. NICOTINE POLACRILEX [Suspect]
     Active Substance: NICOTINE
     Dosage: UNK, UNK
     Route: 002

REACTIONS (6)
  - Abdominal discomfort [Unknown]
  - Choking sensation [Unknown]
  - Drug ineffective [Unknown]
  - Burning sensation mucosal [Unknown]
  - Dizziness [Unknown]
  - Stomatitis [Unknown]
